FAERS Safety Report 7992134-X (Version None)
Quarter: 2011Q4

REPORT INFORMATION
  Report Type: 
  Country: None (occurrence: None)
  Receive Date: 20111219
  Receipt Date: 20110630
  Transmission Date: 20120403
  Serious: No
  Sender: FDA-Public Use
  Company Number: US-ASTRAZENECA-2011SE39377

PATIENT
  Age: 77 Year
  Sex: Male

DRUGS (13)
  1. BYSTOLIC [Concomitant]
     Indication: HYPERTENSION
  2. LIPITOR [Concomitant]
     Indication: HYPERCHOLESTEROLAEMIA
  3. INSULIN PEN [Concomitant]
     Indication: DIABETES MELLITUS
  4. JUNUVIA [Concomitant]
     Indication: DIABETES MELLITUS
  5. HUMALOG [Concomitant]
     Indication: DIABETES MELLITUS
  6. NITROGLYCERIN [Concomitant]
     Indication: CARDIAC DISORDER
  7. VITAMIN D [Concomitant]
  8. PEPCID [Concomitant]
     Indication: GASTROOESOPHAGEAL REFLUX DISEASE
  9. MAGNESIUM [Concomitant]
     Indication: HYPOMAGNESAEMIA
  10. COZAAR [Concomitant]
     Indication: HYPERTENSION
  11. PLAVIX [Concomitant]
     Indication: CARDIAC DISORDER
  12. CRESTOR [Suspect]
     Route: 048
     Dates: start: 20110629
  13. AMIODARONE HCL [Concomitant]
     Indication: ATRIAL FIBRILLATION

REACTIONS (3)
  - MYALGIA [None]
  - BLOOD PRESSURE INCREASED [None]
  - ABDOMINAL DISCOMFORT [None]
